FAERS Safety Report 4860382-3 (Version None)
Quarter: 2005Q4

REPORT INFORMATION
  Report Type: 
  Country: None (occurrence: None)
  Receive Date: 20051215
  Receipt Date: 20051128
  Transmission Date: 20060501
  Serious: Yes (Life-Threatening, Hospitalization, Other)
  Sender: FDA-Public Use
  Company Number: US_0507119867

PATIENT
  Age: 24 Year
  Sex: Female
  Weight: 72.1 kg

DRUGS (7)
  1. ZYPREXA [Suspect]
     Indication: INSOMNIA
     Dosage: 10 MG, DAILY (1/D), ORAL
     Route: 048
     Dates: start: 19991112, end: 20031106
  2. HUMALOG MIX 25 (INSULIN LISPRO, INSULIN LISPRO PROTAMINE SUSPENSION) [Concomitant]
  3. PROZAC [Concomitant]
  4. LANTUS [Concomitant]
  5. LIPITOR [Concomitant]
  6. PHENERGAN (PROMETHAZINE HYDROCHLORIDE) [Concomitant]
  7. DEPO-PROVERA SUSPENSION/INJ [Concomitant]

REACTIONS (31)
  - ABDOMINAL PAIN [None]
  - ARTHRALGIA [None]
  - BACK PAIN [None]
  - BLOOD GLUCOSE FLUCTUATION [None]
  - CONDITION AGGRAVATED [None]
  - DIABETES MELLITUS INSULIN-DEPENDENT [None]
  - DIABETES MELLITUS NON-INSULIN-DEPENDENT [None]
  - DIABETIC KETOACIDOSIS [None]
  - GLYCOSYLATED HAEMOGLOBIN INCREASED [None]
  - HAEMATOCRIT DECREASED [None]
  - HAEMOGLOBIN DECREASED [None]
  - HEPATIC STEATOSIS [None]
  - HYPERLIPIDAEMIA [None]
  - HYPOCALCAEMIA [None]
  - HYPONATRAEMIA [None]
  - INSULIN RESISTANCE [None]
  - LUNG INFILTRATION [None]
  - NAUSEA [None]
  - NEUROPATHY [None]
  - PANCREATITIS [None]
  - PARAESTHESIA [None]
  - PARTIAL LIPODYSTROPHY [None]
  - PLEURAL EFFUSION [None]
  - RESPIRATORY FAILURE [None]
  - SPLENOMEGALY [None]
  - STAPHYLOCOCCAL INFECTION [None]
  - THYROXINE ABNORMAL [None]
  - TREATMENT NONCOMPLIANCE [None]
  - VISION BLURRED [None]
  - VOMITING [None]
  - WEIGHT INCREASED [None]
